FAERS Safety Report 7383455-2 (Version None)
Quarter: 2011Q1

REPORT INFORMATION
  Report Type: 
  Country: None (occurrence: None)
  Receive Date: 20110328
  Receipt Date: 20110328
  Transmission Date: 20110831
  Serious: Yes (Life-Threatening, Hospitalization, Other)
  Sender: FDA-Public Use
  Company Number: None

PATIENT
  Age: 37 Year
  Sex: Female
  Weight: 39.9165 kg

DRUGS (1)
  1. DEPO-PROVERA [Suspect]
     Indication: OVARIAN CYST
     Dosage: I SHOT...3 MONTH SHOT 1 IM
     Route: 030
     Dates: start: 20101029, end: 20110129

REACTIONS (2)
  - PROTEIN C INCREASED [None]
  - CEREBROVASCULAR ACCIDENT [None]
